FAERS Safety Report 19631426 (Version 1)
Quarter: 2021Q3

REPORT INFORMATION
  Report Type: Spontaneous
  Country: US (occurrence: US)
  Receive Date: 20210728
  Receipt Date: 20210728
  Transmission Date: 20211014
  Serious: Yes (Hospitalization)
  Sender: FDA-Public Use
  Company Number: US-IGSA-BIG0013621

PATIENT
  Sex: Female

DRUGS (1)
  1. HUMAN NORMAL IMMUNOGLOBULIN (IV) [Suspect]
     Active Substance: HUMAN IMMUNOGLOBULIN G
     Indication: AUTONOMIC NERVOUS SYSTEM IMBALANCE
     Dosage: UNK
     Route: 042
     Dates: start: 20210226, end: 20210227

REACTIONS (6)
  - Meningitis aseptic [Recovered/Resolved]
  - Back pain [Recovering/Resolving]
  - Headache [Recovered/Resolved]
  - Diarrhoea [Recovered/Resolved]
  - Musculoskeletal stiffness [Recovered/Resolved]
  - Vomiting [Recovered/Resolved]

NARRATIVE: CASE EVENT DATE: 20210228
